FAERS Safety Report 20967375 (Version 7)
Quarter: 2024Q2

REPORT INFORMATION
  Report Type: Spontaneous
  Country: US (occurrence: US)
  Receive Date: 20220616
  Receipt Date: 20240411
  Transmission Date: 20240716
  Serious: No
  Sender: FDA-Public Use
  Company Number: US-PFIZER INC-2021273833

PATIENT
  Age: 72 Year
  Sex: Female

DRUGS (1)
  1. NORPACE [Suspect]
     Active Substance: DISOPYRAMIDE PHOSPHATE
     Dosage: 1 CAP TWICE DAILY

REACTIONS (4)
  - Therapeutic product effect incomplete [Unknown]
  - Off label use [Unknown]
  - Intentional product misuse [Unknown]
  - Fatigue [Unknown]
